FAERS Safety Report 8391593-0 (Version None)
Quarter: 2012Q2

REPORT INFORMATION
  Report Type: 
  Country: None (occurrence: None)
  Receive Date: 20120529
  Receipt Date: 20120528
  Transmission Date: 20120825
  Serious: Yes (Other)
  Sender: FDA-Public Use
  Company Number: PHHY2012PK044385

PATIENT
  Age: 52 Year
  Sex: Male

DRUGS (2)
  1. CLOZARIL [Suspect]
     Dosage: 100 MG, UNK
  2. CLOZARIL [Suspect]
     Dosage: 200 MG, UNK
     Route: 048

REACTIONS (2)
  - MALARIA [None]
  - PLATELET COUNT DECREASED [None]
